FAERS Safety Report 10195847 (Version 2)
Quarter: 2014Q3

REPORT INFORMATION
  Report Type: Spontaneous
  Country: PT (occurrence: PT)
  Receive Date: 20140527
  Receipt Date: 20140723
  Transmission Date: 20150326
  Serious: Yes (Death, Life-Threatening, Hospitalization)
  Sender: FDA-Public Use
  Company Number: PT-CELGENEUS-130-50794-14052017

PATIENT
  Age: 75 Year
  Sex: Male

DRUGS (2)
  1. VIDAZA [Suspect]
     Active Substance: AZACITIDINE
     Indication: ACUTE MYELOID LEUKAEMIA
     Dosage: 17.8571 MILLIGRAM/SQ. METER
     Route: 058
     Dates: start: 20101213, end: 20131101
  2. PANTOPRAZOLE [Concomitant]
     Active Substance: PANTOPRAZOLE SODIUM
     Indication: GASTRIC ULCER
     Dosage: 40 MILLIGRAM
     Route: 048
     Dates: start: 20070601, end: 20131119

REACTIONS (7)
  - Sclerotherapy [Recovered/Resolved with Sequelae]
  - Acute myeloid leukaemia [Fatal]
  - Gastrointestinal haemorrhage [Recovered/Resolved with Sequelae]
  - Gastrointestinal haemorrhage [Fatal]
  - Gastrointestinal haemorrhage [Recovered/Resolved]
  - Constipation [Recovered/Resolved]
  - Infection [Unknown]

NARRATIVE: CASE EVENT DATE: 20110110
